FAERS Safety Report 8973736 (Version 1)
Quarter: 2012Q4

REPORT INFORMATION
  Report Type: 
  Country: DE (occurrence: DE)
  Receive Date: 20121218
  Receipt Date: 20121218
  Transmission Date: 20130627
  Serious: Yes (Hospitalization)
  Sender: FDA-Public Use
  Company Number: DE-ELI_LILLY_AND_COMPANY-DE201210001429

PATIENT
  Sex: Female

DRUGS (6)
  1. BYDUREON [Suspect]
     Indication: DIABETES MELLITUS
     Dosage: UNK, weekly (1/W)
     Route: 058
     Dates: start: 201204
  2. GLUCOPHAGE [Concomitant]
     Dosage: 1000 DF, UNK
  3. EUTHYROX [Concomitant]
     Dosage: 100 DF, UNK
  4. SIMVASTATIN [Concomitant]
  5. LISILICH COMP [Concomitant]
  6. IBUPROFEN [Concomitant]
     Dosage: UNK, prn

REACTIONS (1)
  - Rotator cuff syndrome [Not Recovered/Not Resolved]
